FAERS Safety Report 14093180 (Version 1)
Quarter: 2017Q4

REPORT INFORMATION
  Report Type: Spontaneous
  Country: US (occurrence: US)
  Receive Date: 20171016
  Receipt Date: 20171016
  Transmission Date: 20180321
  Serious: Yes (Other)
  Sender: FDA-Public Use
  Company Number: US-PFIZER INC-2017442132

PATIENT
  Age: 69 Year
  Sex: Female
  Weight: 41.28 kg

DRUGS (4)
  1. ADVIL [Suspect]
     Active Substance: IBUPROFEN
     Indication: MIGRAINE WITH AURA
     Dosage: UNK
     Dates: end: 20170822
  2. SYNTHROID [Concomitant]
     Active Substance: LEVOTHYROXINE SODIUM
     Indication: THYROID DISORDER
     Dosage: 0.88 MG, 1X/DAY
     Route: 048
     Dates: start: 1977
  3. MULTIVITAMIN /07504101/ [Concomitant]
     Active Substance: VITAMINS
  4. ADVIL [Suspect]
     Active Substance: IBUPROFEN
     Indication: HEADACHE

REACTIONS (7)
  - Urticaria [Recovering/Resolving]
  - Angioedema [Not Recovered/Not Resolved]
  - Drug hypersensitivity [Unknown]
  - Lip swelling [Unknown]
  - Drug ineffective [Unknown]
  - Dyspnoea [Unknown]
  - Anaphylactic reaction [Recovered/Resolved]

NARRATIVE: CASE EVENT DATE: 2017
